FAERS Safety Report 22520509 (Version 1)
Quarter: 2023Q2

REPORT INFORMATION
  Report Type: Spontaneous
  Country: US (occurrence: None)
  Receive Date: 20230603
  Receipt Date: 20230603
  Transmission Date: 20230722
  Serious: Yes (Life-Threatening)
  Sender: FDA-Public Use
  Company Number: None

PATIENT
  Age: 61 Year
  Sex: Male
  Weight: 72.9 kg

DRUGS (5)
  1. REPATHA [Suspect]
     Active Substance: EVOLOCUMAB
     Indication: Low density lipoprotein
     Dosage: OTHER QUANTITY : 2 INJECTION(S);?OTHER FREQUENCY : EVERY 14 DAYS;?
     Route: 058
     Dates: start: 20230531, end: 20230601
  2. NEBIVOLOL [Concomitant]
     Active Substance: NEBIVOLOL
  3. ACYCLOVIR [Concomitant]
     Active Substance: ACYCLOVIR
  4. TEMAZEPAM [Concomitant]
     Active Substance: TEMAZEPAM
  5. ASPIRIN [Concomitant]
     Active Substance: ASPIRIN

REACTIONS (3)
  - Cardiac arrest [None]
  - Product substitution issue [None]
  - Loss of consciousness [None]

NARRATIVE: CASE EVENT DATE: 20230601
